FAERS Safety Report 9825762 (Version 1)
Quarter: 2013Q4

REPORT INFORMATION
  Report Type: Spontaneous
  Country: US (occurrence: None)
  Receive Date: 20131028
  Receipt Date: 20131028
  Transmission Date: 20140711
  Serious: Yes (Other)
  Sender: FDA-Public Use
  Company Number: 2013US002231

PATIENT
  Age: 67 Year
  Sex: Female
  Weight: 48 kg

DRUGS (7)
  1. ICLUSIG [Suspect]
     Indication: CHROMOSOME ANALYSIS ABNORMAL
     Route: 048
     Dates: start: 20130724
  2. ICLUSIG [Suspect]
     Indication: ACUTE LYMPHOCYTIC LEUKAEMIA
     Route: 048
     Dates: start: 20130724
  3. OMEPRAZOLE [Concomitant]
  4. DAPSONE [Concomitant]
  5. CELEXA [Concomitant]
  6. ACYCLOVIR [Concomitant]
  7. XANAX [Concomitant]

REACTIONS (3)
  - Rash macular [None]
  - Gait disturbance [None]
  - Poor peripheral circulation [None]
